FAERS Safety Report 6621680-6 (Version None)
Quarter: 2010Q1

REPORT INFORMATION
  Report Type: 
  Country: None (occurrence: None)
  Receive Date: 20100223
  Receipt Date: 20100120
  Transmission Date: 20100710
  Serious: No
  Sender: FDA-Public Use
  Company Number: 005170

PATIENT
  Sex: Female
  Weight: 88.9 kg

DRUGS (8)
  1. CIMZIA [Suspect]
     Indication: CROHN'S DISEASE
     Dosage: SUBCUTANEOUS, 200 MG, MONTHLY SUBCUTANEOUS
     Route: 058
     Dates: start: 20090716, end: 20090801
  2. CIMZIA [Suspect]
     Indication: CROHN'S DISEASE
     Dosage: SUBCUTANEOUS, 200 MG, MONTHLY SUBCUTANEOUS
     Route: 058
     Dates: start: 20091001
  3. METOPROLOL TARTRATE [Concomitant]
  4. VICODIN [Concomitant]
  5. AZMACORT [Concomitant]
  6. ASACOL [Concomitant]
  7. NORVASC [Concomitant]
  8. ZOLOFT [Concomitant]

REACTIONS (6)
  - BRONCHITIS [None]
  - HYPOAESTHESIA [None]
  - NASOPHARYNGITIS [None]
  - PARAESTHESIA [None]
  - SINUSITIS [None]
  - VITAMIN B12 DECREASED [None]
